FAERS Safety Report 9315712 (Version 1)
Quarter: 2013Q2

REPORT INFORMATION
  Report Type: Spontaneous
  Country: GB (occurrence: GB)
  Receive Date: 20130529
  Receipt Date: 20130529
  Transmission Date: 20140414
  Serious: Yes (Hospitalization)
  Sender: FDA-Public Use
  Company Number: PHHY2013GB051868

PATIENT
  Sex: Female

DRUGS (3)
  1. DOCETAXEL [Suspect]
     Route: 065
     Dates: start: 20130412
  2. PERJETA [Suspect]
     Route: 065
     Dates: start: 20130412
  3. HERCEPTIN [Suspect]
     Route: 065
     Dates: start: 20130412

REACTIONS (3)
  - Blood sodium decreased [Unknown]
  - Pain [Unknown]
  - Neutropenia [Unknown]
